FAERS Safety Report 8858585 (Version 1)
Quarter: 2012Q4

REPORT INFORMATION
  Report Type: Report from Study
  Country: CI (occurrence: CI)
  Receive Date: 20121024
  Receipt Date: 20121024
  Transmission Date: 20130627
  Serious: Yes (Death)
  Sender: FDA-Public Use
  Company Number: CI-GILEAD-2012-0063478

PATIENT
  Age: 0 Year
  Sex: Male

DRUGS (3)
  1. EMTRICITABINE/TENOFOVIR DISOPROXIL FUMARATE [Suspect]
     Indication: HIV INFECTION
     Dosage: UNK
     Route: 064
     Dates: start: 201005
  2. LOPINAVIR W/RITONAVIR [Suspect]
     Indication: HIV INFECTION
     Dosage: UNK
     Route: 064
     Dates: start: 201005
  3. ZIDOVUDINE W/LAMIVUDINE [Concomitant]
     Indication: HIV INFECTION
     Dosage: UNK
     Route: 064

REACTIONS (1)
  - Death neonatal [Fatal]
